FAERS Safety Report 20340646 (Version 11)
Quarter: 2022Q4

REPORT INFORMATION
  Report Type: Report from Study
  Country: GB (occurrence: GB)
  Receive Date: 20220117
  Receipt Date: 20221019
  Transmission Date: 20230113
  Serious: Yes (Hospitalization, Other)
  Sender: FDA-Public Use
  Company Number: GB-NOVARTISPH-NVSC2022GB007172

PATIENT
  Age: 79 Year
  Sex: Female

DRUGS (2)
  1. KISQALI [Suspect]
     Active Substance: RIBOCICLIB
     Indication: Breast cancer
     Dosage: 400 MG, QD
     Route: 048
     Dates: start: 20210902
  2. KISQALI [Suspect]
     Active Substance: RIBOCICLIB
     Dosage: 200 MG, QD
     Route: 048

REACTIONS (16)
  - Pulmonary thrombosis [Recovering/Resolving]
  - Pneumonia [Recovered/Resolved]
  - Conjunctival haemorrhage [Recovered/Resolved]
  - Lymphoedema [Unknown]
  - Spinal cord compression [Unknown]
  - Neutropenia [Unknown]
  - Dry skin [Unknown]
  - Alopecia [Not Recovered/Not Resolved]
  - Epistaxis [Unknown]
  - Pain in extremity [Unknown]
  - Hot flush [Unknown]
  - Anxiety [Unknown]
  - Depression [Unknown]
  - Diarrhoea [Unknown]
  - Neutrophil count decreased [Unknown]
  - Back pain [Unknown]

NARRATIVE: CASE EVENT DATE: 20220608
